FAERS Safety Report 10521811 (Version 2)
Quarter: 2014Q4

REPORT INFORMATION
  Report Type: Spontaneous
  Country: US (occurrence: US)
  Receive Date: 20141016
  Receipt Date: 20141016
  Transmission Date: 20150528
  Serious: Yes (Death, Hospitalization, Other)
  Sender: FDA-Public Use
  Company Number: US-GLAXOSMITHKLINE-A0870865A

PATIENT
  Sex: Female

DRUGS (1)
  1. AVANDIA [Suspect]
     Active Substance: ROSIGLITAZONE MALEATE
     Indication: DIABETES MELLITUS
     Dosage: 8 MG, QD
     Route: 048
     Dates: end: 20030902

REACTIONS (6)
  - Cerebrovascular accident [Fatal]
  - Cerebellar haemorrhage [Fatal]
  - Hemiparesis [Unknown]
  - Pulmonary oedema [Unknown]
  - VIIth nerve paralysis [Unknown]
  - Haemorrhage intracranial [Unknown]
